FAERS Safety Report 4895576-4 (Version None)
Quarter: 2006Q1

REPORT INFORMATION
  Report Type: 
  Country: None (occurrence: None)
  Receive Date: 20060130
  Receipt Date: 20051209
  Transmission Date: 20060701
  Serious: Yes (Death, Hospitalization)
  Sender: FDA-Public Use
  Company Number: NL-ROCHE-428099

PATIENT
  Age: 72 Year
  Sex: Male

DRUGS (7)
  1. CAPECITABINE [Suspect]
     Dosage: AS PER PROTOCOL GIVEN ON DAYS 1 TO 14 EVERY THREE WEEKS
     Route: 048
     Dates: start: 20051123
  2. BEVACIZUMAB [Suspect]
     Route: 042
     Dates: start: 20051123
  3. OXALIPLATIN [Suspect]
     Route: 042
     Dates: start: 20051123
  4. OMNIC [Concomitant]
  5. SPIRIVA [Concomitant]
  6. OXIS [Concomitant]
  7. PULMICORT [Concomitant]

REACTIONS (4)
  - CARDIAC ARREST [None]
  - DIARRHOEA [None]
  - DYSPNOEA [None]
  - PYREXIA [None]
